FAERS Safety Report 5813349-2 (Version None)
Quarter: 2008Q3

REPORT INFORMATION
  Report Type: 
  Country: None (occurrence: None)
  Receive Date: 20080711
  Receipt Date: 20080703
  Transmission Date: 20090109
  Serious: Yes (Death, Hospitalization, Disabling, Other)
  Sender: FDA-Public Use
  Company Number: 163-21880-08040717

PATIENT
  Age: 58 Year
  Sex: Male

DRUGS (2)
  1. REVLIMID [Suspect]
     Indication: 5Q MINUS SYNDROME
     Dosage: 10 MG, 1 IN 1, ORAL
     Route: 048
     Dates: start: 20080403, end: 20080408
  2. ALLOPURINOL [Concomitant]

REACTIONS (7)
  - ARTHRALGIA [None]
  - CONDITION AGGRAVATED [None]
  - GOUT [None]
  - MENTAL STATUS CHANGES [None]
  - MYELODYSPLASTIC SYNDROME [None]
  - PNEUMONIA [None]
  - RENAL FAILURE [None]
